FAERS Safety Report 8520173-9 (Version None)
Quarter: 2012Q3

REPORT INFORMATION
  Report Type: 
  Country: None (occurrence: None)
  Receive Date: 20120719
  Receipt Date: 20120710
  Transmission Date: 20120928
  Serious: Yes (Hospitalization)
  Sender: FDA-Public Use
  Company Number: DE-JNJFOC-20120607266

PATIENT
  Age: 37 Year
  Sex: Male

DRUGS (6)
  1. HALDOL [Suspect]
     Indication: DELIRIUM
     Route: 048
     Dates: start: 20120305, end: 20120307
  2. HALDOL [Suspect]
     Route: 048
     Dates: start: 20120308, end: 20120309
  3. HALDOL [Suspect]
     Route: 048
     Dates: start: 20120311, end: 20120312
  4. TEGRETOL [Suspect]
     Indication: PRODUCT USED FOR UNKNOWN INDICATION
     Route: 048
     Dates: start: 20120305, end: 20120306
  5. TEGRETOL [Suspect]
     Route: 048
     Dates: start: 20120307, end: 20120308
  6. HALDOL [Suspect]
     Route: 048
     Dates: start: 20120310, end: 20120311

REACTIONS (3)
  - LIPASE INCREASED [None]
  - LIVER FUNCTION TEST ABNORMAL [None]
  - OEDEMA PERIPHERAL [None]
